FAERS Safety Report 23647266 (Version 2)
Quarter: 2024Q2

REPORT INFORMATION
  Report Type: Spontaneous
  Country: US (occurrence: US)
  Receive Date: 20240319
  Receipt Date: 20240502
  Transmission Date: 20240716
  Serious: Yes (Other)
  Sender: FDA-Public Use
  Company Number: US-AMERICAN REGENT INC-2024000933

PATIENT
  Age: 66 Year
  Sex: Female

DRUGS (1)
  1. VENOFER [Suspect]
     Active Substance: IRON SUCROSE
     Indication: Iron deficiency anaemia
     Dosage: 500 MILLIGRAM MIXED IN 250 ML OF NORMAL SALINE
     Route: 042
     Dates: start: 20240229, end: 20240229

REACTIONS (6)
  - Cardiac failure [Recovered/Resolved]
  - Respiratory arrest [Recovered/Resolved]
  - Muscle tightness [Unknown]
  - Burning sensation [Unknown]
  - Pain in extremity [Unknown]
  - Loss of consciousness [Recovered/Resolved]

NARRATIVE: CASE EVENT DATE: 20240229
